FAERS Safety Report 8210494-1 (Version None)
Quarter: 2012Q1

REPORT INFORMATION
  Report Type: 
  Country: None (occurrence: None)
  Receive Date: 20120314
  Receipt Date: 20110316
  Transmission Date: 20120608
  Serious: No
  Sender: FDA-Public Use
  Company Number: US-ASTRAZENECA-2011SE14768

PATIENT
  Age: 61 Year
  Sex: Male
  Weight: 97.5 kg

DRUGS (2)
  1. TOPROL-XL [Suspect]
     Indication: HYPERTENSION
     Route: 048
     Dates: start: 20050101, end: 20100801
  2. LISINOPRIL [Concomitant]

REACTIONS (2)
  - ALOPECIA [None]
  - MADAROSIS [None]
